FAERS Safety Report 7502725-8 (Version None)
Quarter: 2011Q2

REPORT INFORMATION
  Report Type: 
  Country: None (occurrence: None)
  Receive Date: 20110524
  Receipt Date: 20110524
  Transmission Date: 20111010
  Serious: Yes (Hospitalization)
  Sender: FDA-Public Use
  Company Number: None

PATIENT
  Age: 74 Year
  Sex: Male
  Weight: 66 kg

DRUGS (1)
  1. CARVEDILOL [Suspect]
     Indication: CORONARY ARTERY DISEASE
     Dosage: 25 MG BID PO
     Route: 048
     Dates: start: 20110316, end: 20110410

REACTIONS (4)
  - BRADYCARDIA [None]
  - CARDIAC FAILURE CONGESTIVE [None]
  - CONDITION AGGRAVATED [None]
  - ATRIOVENTRICULAR BLOCK SECOND DEGREE [None]
